FAERS Safety Report 10407220 (Version 1)
Quarter: 2014Q1

REPORT INFORMATION
  Report Type: Spontaneous
  Country: US (occurrence: None)
  Receive Date: 20140228
  Receipt Date: 20140228
  Transmission Date: 20141002
  Serious: No
  Sender: FDA-Public Use
  Company Number: 225274LEO

PATIENT
  Age: 84 Year
  Sex: Male

DRUGS (2)
  1. PICATO (INGENOL MEBUTATE) (0.05 %, GEL) [Suspect]
     Indication: PRECANCEROUS SKIN LESION
     Route: 061
     Dates: start: 20121218, end: 20121219
  2. SYNTHROID (LEVOTHYROXINE SODIUM) [Concomitant]

REACTIONS (9)
  - Application site erythema [None]
  - Application site vesicles [None]
  - Application site exfoliation [None]
  - Application site pustules [None]
  - Application site scab [None]
  - Application site pain [None]
  - Application site pruritus [None]
  - Application site pain [None]
  - Drug administered at inappropriate site [None]
